FAERS Safety Report 6763310-9 (Version None)
Quarter: 2010Q2

REPORT INFORMATION
  Report Type: 
  Country: None (occurrence: None)
  Receive Date: 20100610
  Receipt Date: 20100603
  Transmission Date: 20101027
  Serious: Yes (Life-Threatening, Hospitalization)
  Sender: FDA-Public Use
  Company Number: US-JNJFOC-20100602821

PATIENT
  Age: 56 Year
  Sex: Male
  Weight: 96.6 kg

DRUGS (10)
  1. IMODIUM [Suspect]
     Indication: DRUG USE FOR UNKNOWN INDICATION
     Route: 065
  2. CAMPTOSAR [Suspect]
     Indication: COLON CANCER
     Route: 065
  3. FLUOROURACIL [Suspect]
     Indication: DRUG USE FOR UNKNOWN INDICATION
     Route: 065
  4. LEUCOVORIN CALCIUM [Suspect]
     Indication: DRUG USE FOR UNKNOWN INDICATION
     Route: 065
  5. ATORVASTATIN [Concomitant]
     Route: 065
  6. DIOVAN [Concomitant]
     Route: 065
  7. VERAPAMIL HYDROCHLORIDE [Concomitant]
     Route: 065
  8. ZOFRAN [Concomitant]
     Route: 065
  9. NEUPOGEN [Concomitant]
     Route: 065
  10. CARDIZEM [Concomitant]
     Route: 065

REACTIONS (10)
  - ABDOMINAL PAIN [None]
  - BLOOD CALCIUM DECREASED [None]
  - BLOOD GLUCOSE INCREASED [None]
  - BLOOD SODIUM DECREASED [None]
  - HEART RATE INCREASED [None]
  - NEUTROPENIA [None]
  - OVERDOSE [None]
  - PLATELET COUNT DECREASED [None]
  - PYREXIA [None]
  - WHITE BLOOD CELL COUNT DECREASED [None]
